FAERS Safety Report 6781671 (Version 4)
Quarter: 2014Q2

REPORT INFORMATION
  Report Type: Spontaneous
  Country: US (occurrence: None)
  Receive Date: 20080924
  Receipt Date: 20140630
  Transmission Date: 20141212
  Serious: Yes (Other)
  Sender: FDA-Public Use
  Company Number: 2008S1009164

PATIENT
  Age: 61 Year
  Sex: Female
  Weight: 124.74 kg

DRUGS (13)
  1. FLEET PHOSPHO-SODA ORAL SALINE LAXATIVE, GINGER-LEMON FLAVOR (ORAL SOLUTION) [Suspect]
     Indication: COLONOSCOPY
     Dosage: 90 ML;PO
     Route: 048
     Dates: start: 20050619, end: 20050619
  2. LIPITOR (ATORVASTATIN CALCIUM) [Concomitant]
  3. SYNTHROID (LEVOTHYROXINE SODIUM) [Concomitant]
  4. AVANDAMET (METFORMIN HYDROCHLORIDE, ROSIGLITAZONE MALEATE) (TABLETS) [Concomitant]
  5. BENICAR HCT (HYDROCHLOROTHIAZIDE, OLMESARTAN MEDOXOMIL) (TABLETS) [Concomitant]
  6. NEXIUM /01479303/ (ESOMEPRAZOLE SODIUM) [Concomitant]
  7. TRICOR /00090101/ (ADENOSINE) (TABLETS) [Concomitant]
  8. METOCLOPRAMIDE HCL /00041902/ (METOCLOPRAMIDE HYDROCHLORIDE) (TABLETS) [Concomitant]
  9. VI-Q-TUSS (GIAIFENESIN, HYDROCODONE BITARTRATE) (SYRUP) [Concomitant]
  10. CIPRO /00042702/ (CIPROFLOXACIN) (TABLETS) [Concomitant]
  11. GLUCOSAMINE (GLUCOSAMINE HYDROCHLORIDE) [Concomitant]
  12. CHONDROITIN SULFATE (CHONDROITIN SULFATE) [Concomitant]
  13. BACTROBAN (MUPIROCIN) [Concomitant]

REACTIONS (14)
  - Anaemia [None]
  - Dialysis [None]
  - Asthenia [None]
  - Fatigue [None]
  - Nausea [None]
  - Dehydration [None]
  - Abasia [None]
  - Insomnia [None]
  - Generalised oedema [None]
  - Back pain [None]
  - Pain [None]
  - Renal failure chronic [None]
  - Depression [None]
  - Discomfort [None]
